FAERS Safety Report 7804306-5 (Version None)
Quarter: 2011Q4

REPORT INFORMATION
  Report Type: 
  Country: None (occurrence: None)
  Receive Date: 20111010
  Receipt Date: 20110928
  Transmission Date: 20120403
  Serious: Yes (Other)
  Sender: FDA-Public Use
  Company Number: US-BAYER-201028370NA

PATIENT
  Age: 36 Year
  Sex: Female
  Weight: 82.54 kg

DRUGS (17)
  1. PROVENTIL-HFA [Concomitant]
     Dosage: 90 UNK, UNK
     Dates: start: 20080301
  2. ZYRTEC [Concomitant]
  3. DIFLUCAN [Concomitant]
     Dosage: 150 MG, QD
     Dates: start: 20080421
  4. PROPOXYPHENE NAPSYLATE W/ ACETAMINOPHEN [Concomitant]
     Indication: PAIN
     Dosage: UNK UNK, PRN
     Route: 048
  5. YAZ [Suspect]
     Indication: FEMALE STERILISATION
  6. FACTIVE [Concomitant]
     Dosage: 320 MG, QD
     Route: 048
     Dates: start: 20080421
  7. YAZ [Suspect]
     Indication: PRODUCT USED FOR UNKNOWN INDICATION
     Route: 048
     Dates: start: 20080601, end: 20080801
  8. EPINEPHRINE [Concomitant]
     Indication: HYPERSENSITIVITY
     Dosage: UNK
     Route: 058
     Dates: start: 20070101
  9. OXYCODONE HCL AND ACETAMINOPHEN [Concomitant]
     Dosage: UNK UNK, QID
     Route: 048
     Dates: start: 20080602
  10. NABUMETONE [Concomitant]
     Dosage: 750 MG, BID
     Route: 048
     Dates: start: 20080719
  11. PHENERGAN HCL [Concomitant]
     Dosage: UNK
     Route: 048
     Dates: start: 20080101
  12. TESSALON [Concomitant]
     Dosage: 200 MG, TID
     Dates: start: 20080421
  13. SINGULAIR [Concomitant]
     Dosage: 10 MG, UNK
     Route: 048
     Dates: start: 20080301
  14. PREDNISONE [Concomitant]
     Dosage: UNK
     Dates: start: 20080719
  15. ULTRACET [Concomitant]
     Dosage: UNK
     Route: 048
     Dates: start: 20080101, end: 20080101
  16. YASMIN [Suspect]
     Indication: FEMALE STERILISATION
     Dosage: UNK
     Dates: start: 20030101, end: 20030101
  17. TWINJECT 0.3 [Concomitant]
     Dosage: 0.3 MG, UNK
     Route: 058
     Dates: start: 20080421

REACTIONS (6)
  - DEPRESSION [None]
  - FEAR [None]
  - EMOTIONAL DISTRESS [None]
  - DEEP VEIN THROMBOSIS [None]
  - PAIN IN EXTREMITY [None]
  - ANXIETY [None]
